FAERS Safety Report 4515538-6 (Version None)
Quarter: 2004Q4

REPORT INFORMATION
  Report Type: 
  Country: None (occurrence: None)
  Receive Date: 20041126
  Receipt Date: 20041111
  Transmission Date: 20050328
  Serious: Yes (Hospitalization, Other)
  Sender: FDA-Public Use
  Company Number: 203474

PATIENT
  Age: 44 Year
  Sex: Female
  Weight: 59.4212 kg

DRUGS (27)
  1. AVONEX [Suspect]
     Indication: MULTIPLE SCLEROSIS
     Dosage: 30 UG;QW;IM
     Route: 030
     Dates: start: 19980601, end: 20030101
  2. AVONEX [Suspect]
     Indication: MULTIPLE SCLEROSIS
     Dosage: 30 UG;QW;IM
     Route: 030
     Dates: start: 20030101, end: 20040410
  3. OXYCONTIN [Concomitant]
  4. DIOVAN [Concomitant]
  5. ZYRTEC [Concomitant]
  6. LOTREL [Concomitant]
  7. PROZAC [Concomitant]
  8. SOMA [Concomitant]
  9. ACTOS [Concomitant]
  10. CELEBREX [Concomitant]
  11. GLUCOVANCE [Concomitant]
  12. URISPAS [Concomitant]
  13. PROVIGIL [Concomitant]
  14. SKELAXIN [Concomitant]
  15. REGLAN [Concomitant]
  16. MAXZIDE [Concomitant]
  17. NITROPATCH [Concomitant]
  18. TOPROL-XL [Concomitant]
  19. PLAVIX [Concomitant]
  20. DEMADEX [Concomitant]
  21. NEXIUM [Concomitant]
  22. NEURONTIN [Concomitant]
  23. GLUCOTROL [Concomitant]
  24. XANAX [Concomitant]
  25. ULTRAM [Concomitant]
  26. VICODIN [Concomitant]
  27. INSULIN [Concomitant]

REACTIONS (29)
  - ANAEMIA [None]
  - ASTHENIA [None]
  - BALANCE DISORDER [None]
  - BLOOD PRESSURE SYSTOLIC INCREASED [None]
  - BRAIN DAMAGE [None]
  - CEREBROVASCULAR ACCIDENT [None]
  - COMA [None]
  - CORONARY ARTERY DISEASE [None]
  - DEPRESSION [None]
  - DIABETIC NEUROPATHY [None]
  - DIFFICULTY IN WALKING [None]
  - FATIGUE [None]
  - FEMORAL ARTERY ANEURYSM [None]
  - HAEMORRHAGE [None]
  - HEPATIC FAILURE [None]
  - INFECTION [None]
  - MULTIPLE SCLEROSIS RELAPSE [None]
  - MUSCLE SPASMS [None]
  - MYOCARDIAL INFARCTION [None]
  - OEDEMA PERIPHERAL [None]
  - ORGAN FAILURE [None]
  - PAIN IN EXTREMITY [None]
  - PHARYNGOLARYNGEAL PAIN [None]
  - PNEUMONIA [None]
  - PYREXIA [None]
  - RENAL FAILURE [None]
  - SENSATION OF BLOCK IN EAR [None]
  - SINUSITIS [None]
  - URINARY TRACT INFECTION [None]
